FAERS Safety Report 25124266 (Version 1)
Quarter: 2025Q1

REPORT INFORMATION
  Report Type: Spontaneous
  Country: US (occurrence: US)
  Receive Date: 20250326
  Receipt Date: 20250326
  Transmission Date: 20250408
  Serious: Yes (Other)
  Sender: SPECTRUM
  Company Number: US-SPECTRUM PHARMACEUTICALS, INC.-US-2025AST000034

PATIENT
  Age: 67 Year
  Sex: Female
  Weight: 63.764 kg

DRUGS (1)
  1. ROLVEDON [Suspect]
     Active Substance: EFLAPEGRASTIM-XNST
     Indication: Prophylaxis
     Route: 058
     Dates: start: 20250110, end: 20250117

REACTIONS (1)
  - Leukocytosis [Recovered/Resolved]

NARRATIVE: CASE EVENT DATE: 20250117
